FAERS Safety Report 7653306-7 (Version None)
Quarter: 2011Q3

REPORT INFORMATION
  Report Type: 
  Country: None (occurrence: None)
  Receive Date: 20110722
  Receipt Date: 20110422
  Transmission Date: 20111222
  Serious: Yes (Hospitalization)
  Sender: FDA-Public Use
  Company Number: UTC-006602

PATIENT
  Age: 55 Year
  Sex: Female
  Weight: 53 kg

DRUGS (1)
  1. REMODULIN [Suspect]
     Indication: PULMONARY ARTERIAL HYPERTENSION
     Dosage: 80.64 UG/KG (0.056 UG/KG,1 IN 1 MIN),INTRAVENOUS
     Route: 042
     Dates: start: 20080404

REACTIONS (1)
  - DEVICE RELATED INFECTION [None]
